FAERS Safety Report 4815051-2 (Version None)
Quarter: 2005Q4

REPORT INFORMATION
  Report Type: 
  Country: None (occurrence: None)
  Receive Date: 20051026
  Receipt Date: 20051010
  Transmission Date: 20060501
  Serious: No
  Sender: FDA-Public Use
  Company Number: FR_050806927

PATIENT
  Age: 84 Year
  Sex: Male

DRUGS (1)
  1. CIALIS [Suspect]
     Indication: ERECTILE DYSFUNCTION
     Dosage: 20 MG OTHER
     Route: 050
     Dates: start: 20050601

REACTIONS (1)
  - VISUAL DISTURBANCE [None]
